FAERS Safety Report 22284912 (Version 7)
Quarter: 2023Q4

REPORT INFORMATION
  Report Type: Report from Study
  Country: US (occurrence: US)
  Receive Date: 20230504
  Receipt Date: 20231226
  Transmission Date: 20240109
  Serious: Yes (Other)
  Sender: FDA-Public Use
  Company Number: US-002147023-NVSC2023US100043

PATIENT
  Sex: Female

DRUGS (1)
  1. KESIMPTA [Suspect]
     Active Substance: OFATUMUMAB
     Indication: Product used for unknown indication
     Dosage: UNK
     Route: 065

REACTIONS (8)
  - Bipolar disorder [Unknown]
  - Depression [Unknown]
  - Speech disorder [Unknown]
  - Urinary tract infection [Unknown]
  - Constipation [Unknown]
  - Swollen tongue [Unknown]
  - Fall [Unknown]
  - Fatigue [Unknown]
